FAERS Safety Report 10213809 (Version 1)
Quarter: 2014Q2

REPORT INFORMATION
  Report Type: Spontaneous
  Country: IT (occurrence: IT)
  Receive Date: 20140603
  Receipt Date: 20140603
  Transmission Date: 20141212
  Serious: Yes (Hospitalization)
  Sender: FDA-Public Use
  Company Number: IT-BAYER-2014-079742

PATIENT
  Age: 45 Year
  Sex: Female

DRUGS (1)
  1. AVALOX [Suspect]
     Indication: LUNG INFECTION
     Dosage: DAILY DOSE 1 DF
     Route: 048
     Dates: start: 20131013, end: 20131013

REACTIONS (1)
  - Hyperchlorhydria [Recovering/Resolving]
